FAERS Safety Report 14614757 (Version 1)
Quarter: 2018Q1

REPORT INFORMATION
  Report Type: Report from Study
  Country: US (occurrence: US)
  Receive Date: 20180308
  Receipt Date: 20180308
  Transmission Date: 20180509
  Serious: No
  Sender: FDA-Public Use
  Company Number: US-ALEXION PHARMACEUTICALS INC.-A201801890

PATIENT
  Sex: Male

DRUGS (2)
  1. SOLIRIS [Suspect]
     Active Substance: ECULIZUMAB
     Indication: ATYPICAL HAEMOLYTIC URAEMIC SYNDROME
     Dosage: UNK, Q12D
     Route: 065
  2. SOLIRIS [Suspect]
     Active Substance: ECULIZUMAB
     Dosage: UNK, Q10D
     Route: 065

REACTIONS (6)
  - Inappropriate schedule of drug administration [Unknown]
  - Ingrowing nail [Unknown]
  - Poor peripheral circulation [Unknown]
  - Oedema peripheral [Unknown]
  - Pain [Unknown]
  - Condition aggravated [Unknown]
